FAERS Safety Report 18252201 (Version 1)
Quarter: 2020Q3

REPORT INFORMATION
  Report Type: Spontaneous
  Country: US (occurrence: US)
  Receive Date: 20200910
  Receipt Date: 20200910
  Transmission Date: 20201103
  Serious: No
  Sender: FDA-Public Use
  Company Number: US-FARMAPROD-202005-0680

PATIENT
  Sex: Female

DRUGS (23)
  1. AMLODIPINE BESYLATE. [Concomitant]
     Active Substance: AMLODIPINE BESYLATE
  2. VITAMIN B [Concomitant]
     Active Substance: VITAMIN B
  3. BIOTIN [Concomitant]
     Active Substance: BIOTIN
  4. PROGRAF [Concomitant]
     Active Substance: TACROLIMUS
  5. ATORVASTATIN CALCIUM. [Concomitant]
     Active Substance: ATORVASTATIN CALCIUM
  6. MAGNESIUM [Concomitant]
     Active Substance: MAGNESIUM
  7. ASPIR [Concomitant]
     Active Substance: ASPIRIN
  8. PROGRAF [Concomitant]
     Active Substance: TACROLIMUS
  9. SYNTHROID [Concomitant]
     Active Substance: LEVOTHYROXINE SODIUM
  10. VITAMIN E [Concomitant]
     Active Substance: .ALPHA.-TOCOPHEROL
  11. PREDNISONE. [Concomitant]
     Active Substance: PREDNISONE
  12. LOSARTAN POTASSIUM. [Concomitant]
     Active Substance: LOSARTAN POTASSIUM
  13. OFLOXACIN. [Concomitant]
     Active Substance: OFLOXACIN
  14. VITAMIN D3 [Concomitant]
     Active Substance: CHOLECALCIFEROL
  15. CALCIUM [Concomitant]
     Active Substance: CALCIUM
  16. ANASTROZOLE. [Concomitant]
     Active Substance: ANASTROZOLE
  17. LATANOPROST. [Concomitant]
     Active Substance: LATANOPROST
  18. FIASP [Concomitant]
     Active Substance: INSULIN ASPART
  19. PREDNISOLONE?NEPAFENAC [Concomitant]
  20. COREG [Concomitant]
     Active Substance: CARVEDILOL
  21. OXERVATE [Suspect]
     Active Substance: CENEGERMIN-BKBJ
     Indication: NEUROTROPHIC KERATOPATHY
     Route: 047
     Dates: start: 20200331
  22. MYFORTIC [Concomitant]
     Active Substance: MYCOPHENOLATE SODIUM
  23. TRESIBA [Concomitant]
     Active Substance: INSULIN DEGLUDEC

REACTIONS (2)
  - Eye pain [Unknown]
  - Vision blurred [Unknown]
